FAERS Safety Report 9335103 (Version 2)
Quarter: 2013Q4

REPORT INFORMATION
  Report Type: Spontaneous
  Country: JP (occurrence: JP)
  Receive Date: 20130606
  Receipt Date: 20131204
  Transmission Date: 20140711
  Serious: Yes (Hospitalization)
  Sender: FDA-Public Use
  Company Number: JP-SANOFI-AVENTIS-2013SA055488

PATIENT
  Age: 80 Year
  Sex: Female

DRUGS (1)
  1. INSULIN GLARGINE [Suspect]
     Indication: DIABETES MELLITUS
     Dosage: DOSE:4 UNIT(S)
     Route: 058

REACTIONS (4)
  - Hypoglycaemia [Recovered/Resolved]
  - Status epilepticus [Recovering/Resolving]
  - Incoherent [Recovering/Resolving]
  - Altered state of consciousness [Recovering/Resolving]
